FAERS Safety Report 6147954-3 (Version None)
Quarter: 2009Q2

REPORT INFORMATION
  Report Type: 
  Country: None (occurrence: None)
  Receive Date: 20090403
  Receipt Date: 20090320
  Transmission Date: 20091009
  Serious: No
  Sender: FDA-Public Use
  Company Number: 2009-193691-NL

PATIENT
  Age: 42 Year
  Sex: Female

DRUGS (1)
  1. VARNOLINE [Suspect]
     Dosage: DF

REACTIONS (1)
  - MENINGIOMA [None]
